FAERS Safety Report 4355944-6 (Version None)
Quarter: 2004Q2

REPORT INFORMATION
  Report Type: 
  Country: None (occurrence: None)
  Receive Date: 20040510
  Receipt Date: 20040506
  Transmission Date: 20050107
  Serious: Yes (Hospitalization, Other)
  Sender: FDA-Public Use
  Company Number: 001404

PATIENT
  Age: 29 Year
  Sex: Female

DRUGS (1)
  1. TRI-SPRINTEC (NORGESTIMATE, ETHINYLESTRADIOL) TABLET [Suspect]
     Indication: ORAL CONTRACEPTION
     Dosage: 1.00 TABLET, QD, ORAL
     Route: 048
     Dates: start: 20040401, end: 20040426

REACTIONS (7)
  - CEREBRAL THROMBOSIS [None]
  - CONVULSION [None]
  - DIFFICULTY IN WALKING [None]
  - DYSPNOEA [None]
  - LOSS OF CONSCIOUSNESS [None]
  - MEDICATION ERROR [None]
  - VISION BLURRED [None]
